FAERS Safety Report 17388019 (Version 3)
Quarter: 2020Q2

REPORT INFORMATION
  Report Type: Report from Study
  Country: CH (occurrence: CH)
  Receive Date: 20200206
  Receipt Date: 20200424
  Transmission Date: 20200713
  Serious: Yes (Hospitalization, Other)
  Sender: FDA-Public Use
  Company Number: CH-TAKEDA-2020TUS008059

PATIENT
  Age: 48 Year
  Sex: Female
  Weight: 58 kg

DRUGS (3)
  1. VORTIOXETINE. [Suspect]
     Active Substance: VORTIOXETINE
     Indication: PRODUCT USED FOR UNKNOWN INDICATION
     Dosage: 10 MILLIGRAM, QD
     Route: 065
     Dates: start: 20200117
  2. VORTIOXETINE. [Suspect]
     Active Substance: VORTIOXETINE
     Dosage: UNK
     Route: 065
     Dates: start: 20200122
  3. VITEX AGNUS CASTUS DRY EXTRACT [Concomitant]
     Indication: HORMONE THERAPY
     Dosage: UNK
     Route: 065
     Dates: start: 20191122

REACTIONS (14)
  - Fatigue [Recovered/Resolved]
  - Cholecystectomy [Recovered/Resolved]
  - Headache [Recovered/Resolved]
  - Lethargy [Recovered/Resolved]
  - Limb discomfort [Recovered/Resolved]
  - Product dose omission [Unknown]
  - Cardiac disorder [Recovered/Resolved]
  - Cerebrovascular accident [Recovered/Resolved]
  - Musculoskeletal pain [Recovered/Resolved]
  - Decreased activity [Recovered/Resolved]
  - Depressed mood [Recovered/Resolved]
  - Euphoric mood [Recovered/Resolved]
  - Discomfort [Recovered/Resolved]
  - Conjunctival haemorrhage [Recovered/Resolved]

NARRATIVE: CASE EVENT DATE: 20200122
